FAERS Safety Report 10741605 (Version 1)
Quarter: 2015Q1

REPORT INFORMATION
  Report Type: Spontaneous
  Country: US (occurrence: None)
  Receive Date: 20150123
  Receipt Date: 20150123
  Transmission Date: 20150721
  Serious: No
  Sender: FDA-Public Use
  Company Number: None

PATIENT
  Sex: Female
  Weight: 95.26 kg

DRUGS (1)
  1. ESTRADIOL. [Suspect]
     Active Substance: ESTRADIOL
     Indication: ARTIFICIAL MENOPAUSE
     Dosage: 1 PATCH
     Route: 062
     Dates: start: 20141223

REACTIONS (4)
  - Application site rash [None]
  - Application site pruritus [None]
  - Hypersensitivity [None]
  - Dermatitis [None]
